FAERS Safety Report 6905493-3 (Version None)
Quarter: 2010Q3

REPORT INFORMATION
  Report Type: 
  Country: None (occurrence: None)
  Receive Date: 20100804
  Receipt Date: 20100802
  Transmission Date: 20110219
  Serious: Yes (Death)
  Sender: FDA-Public Use
  Company Number: PHHY2010CA50688

PATIENT
  Sex: Male

DRUGS (1)
  1. ZOLEDRONIC ACID (RECLAST) [Suspect]
     Indication: OSTEOPOROSIS
     Dosage: UNK
     Route: 042
     Dates: start: 20091022

REACTIONS (1)
  - DEATH [None]
